FAERS Safety Report 5398823-8 (Version None)
Quarter: 2007Q3

REPORT INFORMATION
  Report Type: 
  Country: None (occurrence: None)
  Receive Date: 20070725
  Receipt Date: 20070725
  Transmission Date: 20080115
  Serious: No
  Sender: FDA-Public Use
  Company Number: None

PATIENT
  Age: 49 Year
  Sex: Female

DRUGS (3)
  1. NABUMATONE  500MG  00185-0145-01  SANDOZ/EON [Suspect]
     Indication: ARTHRALGIA
     Dosage: 500MG X2  BID  PO
     Route: 048
     Dates: end: 20060801
  2. NABUMATONE  500MG  00185-0145-01  SANDOZ/EON [Suspect]
     Indication: ARTHRALGIA
     Dosage: 500MG X2  BID  PO
     Route: 048
     Dates: start: 20060801, end: 20070601
  3. NABUMATONE 500MG  00185-0145-01  SANDOZ/EON [Suspect]

REACTIONS (2)
  - DRUG INEFFECTIVE [None]
  - PHARMACEUTICAL PRODUCT COMPLAINT [None]
